FAERS Safety Report 5853349-X (Version None)
Quarter: 2008Q3

REPORT INFORMATION
  Report Type: 
  Country: None (occurrence: None)
  Receive Date: 20080821
  Receipt Date: 20080811
  Transmission Date: 20090109
  Serious: Yes (Hospitalization, Other)
  Sender: FDA-Public Use
  Company Number: KR-PFIZER INC-2006143134

PATIENT
  Sex: Male
  Weight: 54 kg

DRUGS (11)
  1. SU-011,248 [Suspect]
     Indication: METASTATIC RENAL CELL CARCINOMA
     Route: 048
  2. BACLOFEN [Concomitant]
     Route: 048
  3. MULTI-VITAMINS [Concomitant]
     Route: 048
     Dates: start: 20061031, end: 20061113
  4. ARGININE [Suspect]
     Route: 048
     Dates: start: 20061031, end: 20061113
  5. DIAZEPAM [Concomitant]
     Route: 048
  6. FERROUS SULFATE TAB [Concomitant]
     Route: 048
     Dates: start: 20061031, end: 20061113
  7. MAGNESIUM OXIDE [Concomitant]
     Route: 048
     Dates: start: 20061031, end: 20061113
  8. ZOLPIDEM [Concomitant]
     Route: 048
     Dates: start: 20061031, end: 20061113
  9. RANITIDINE [Concomitant]
     Route: 042
     Dates: start: 20061108, end: 20061108
  10. METOCLOPRAMIDE [Concomitant]
     Route: 042
     Dates: start: 20061108, end: 20061108
  11. IBUPROFEN [Concomitant]

REACTIONS (3)
  - HAEMATEMESIS [None]
  - HICCUPS [None]
  - OESOPHAGITIS [None]
